FAERS Safety Report 7592192-0 (Version None)
Quarter: 2011Q3

REPORT INFORMATION
  Report Type: 
  Country: None (occurrence: None)
  Receive Date: 20110706
  Receipt Date: 20110629
  Transmission Date: 20111222
  Serious: Yes (Other)
  Sender: FDA-Public Use
  Company Number: US-JNJFOC-20110700180

PATIENT
  Sex: Female
  Weight: 61.24 kg

DRUGS (1)
  1. DURAGESIC-100 [Suspect]
     Indication: PRODUCT USED FOR UNKNOWN INDICATION
     Route: 062
     Dates: start: 20110623

REACTIONS (4)
  - ENERGY INCREASED [None]
  - DRUG DOSE OMISSION [None]
  - BODY HEIGHT DECREASED [None]
  - RASH MACULAR [None]
